FAERS Safety Report 20562118 (Version 5)
Quarter: 2022Q4

REPORT INFORMATION
  Report Type: Report from Study
  Country: IN (occurrence: IN)
  Receive Date: 20220307
  Receipt Date: 20221019
  Transmission Date: 20230113
  Serious: Yes (Death, Hospitalization, Other)
  Sender: FDA-Public Use
  Company Number: IN-NOVARTISPH-NVSC2020IN183760

PATIENT
  Age: 42 Year
  Sex: Female

DRUGS (2)
  1. RIBOCICLIB [Suspect]
     Active Substance: RIBOCICLIB
     Indication: Breast cancer
     Dosage: 600 MG, QD
     Route: 048
     Dates: start: 20200502, end: 202006
  2. RIBOCICLIB [Suspect]
     Active Substance: RIBOCICLIB
     Dosage: 600 MG, QD
     Route: 065
     Dates: start: 202006, end: 202204

REACTIONS (15)
  - Death [Fatal]
  - Swelling [Unknown]
  - Neck pain [Unknown]
  - Breast cancer [Not Recovered/Not Resolved]
  - Malignant neoplasm progression [Not Recovered/Not Resolved]
  - Ill-defined disorder [Unknown]
  - Neutropenia [Not Recovered/Not Resolved]
  - Hepatic necrosis [Unknown]
  - Lethargy [Not Recovered/Not Resolved]
  - Abdominal discomfort [Unknown]
  - Asthenia [Recovering/Resolving]
  - Back pain [Unknown]
  - Pyrexia [Unknown]
  - Nasopharyngitis [Unknown]
  - Cough [Unknown]

NARRATIVE: CASE EVENT DATE: 20220201
